FAERS Safety Report 4633628-4 (Version None)
Quarter: 2005Q2

REPORT INFORMATION
  Report Type: 
  Country: None (occurrence: None)
  Receive Date: 20050325
  Receipt Date: 20050201
  Transmission Date: 20051028
  Serious: No
  Sender: FDA-Public Use
  Company Number: USA030536638

PATIENT
  Age: 66 Year
  Sex: Female
  Weight: 49 kg

DRUGS (7)
  1. FORTEO [Suspect]
     Indication: OSTEOPOROSIS
     Dosage: 20 UG/D
     Dates: start: 20030401
  2. EVISTA [Suspect]
     Dosage: 60 MG DAY
     Dates: start: 20050121
  3. SYNTHROID [Concomitant]
  4. CALCIUM GLUCONATE [Concomitant]
  5. DIGESTIVE ENZYMES [Concomitant]
  6. VITAMINS [Concomitant]
  7. AREDIA [Concomitant]

REACTIONS (10)
  - ANOREXIA [None]
  - BLOOD CALCIUM INCREASED [None]
  - BONE DENSITY DECREASED [None]
  - FATIGUE [None]
  - HOT FLUSH [None]
  - INCREASED UPPER AIRWAY SECRETION [None]
  - INFLUENZA [None]
  - INJECTION SITE HAEMORRHAGE [None]
  - MUSCLE SPASMS [None]
  - NAUSEA [None]
